FAERS Safety Report 8722828 (Version 2)
Quarter: 2013Q4

REPORT INFORMATION
  Report Type: Spontaneous
  Country: US (occurrence: US)
  Receive Date: 20120814
  Receipt Date: 20131101
  Transmission Date: 20140711
  Serious: No
  Sender: FDA-Public Use
  Company Number: US-009507513-1207USA012016

PATIENT
  Age: 60 Year
  Sex: Male

DRUGS (19)
  1. PRINIVIL [Suspect]
     Route: 048
  2. SYMBICORT [Suspect]
     Dosage: 4.5 MICROGRAM, BID
     Route: 045
  3. METOPROLOL SUCCINATE [Suspect]
     Route: 048
  4. METOPROLOL TARTRATE [Suspect]
     Route: 048
  5. HUMULIN [Concomitant]
     Dosage: 40 IU, QAM
     Route: 058
  6. HUMULIN [Concomitant]
     Dosage: 23 IU, QPM
     Route: 058
  7. AMIODARONE [Concomitant]
     Route: 048
  8. LOVASTATIN [Concomitant]
     Route: 048
  9. LOVASTATIN [Concomitant]
     Route: 048
  10. LORTAB [Concomitant]
     Dosage: 325 MG, QD
     Route: 048
  11. NOVOLIN [Concomitant]
     Dosage: 35 IU, QAM
     Route: 058
  12. NOVOLIN [Concomitant]
     Dosage: 15 IU, QPM
     Route: 058
  13. CARVEDILOL [Concomitant]
     Route: 048
  14. SPIRIVA [Concomitant]
     Dosage: UNK, QD
     Route: 045
  15. ALLOPURINOL [Concomitant]
     Route: 048
  16. PLAVIX [Concomitant]
     Route: 048
  17. ASPIRIN [Concomitant]
     Route: 048
  18. ALBUTEROL [Concomitant]
     Dosage: 2 DF, QID
     Route: 048
  19. LASIX (FUROSEMIDE SODIUM) [Concomitant]
     Route: 048

REACTIONS (11)
  - Hypertension [Unknown]
  - Rhinitis allergic [Unknown]
  - Gout [Unknown]
  - Type 2 diabetes mellitus [Unknown]
  - Cataract [Unknown]
  - Sleep apnoea syndrome [Unknown]
  - Coronary artery disease [Unknown]
  - Hyperlipidaemia [Unknown]
  - Renal failure [Unknown]
  - Chronic obstructive pulmonary disease [Unknown]
  - Asthma [Unknown]
